FAERS Safety Report 6511073-4 (Version None)
Quarter: 2009Q4

REPORT INFORMATION
  Report Type: 
  Country: None (occurrence: None)
  Receive Date: 20091222
  Receipt Date: 20090220
  Transmission Date: 20100525
  Serious: No
  Sender: FDA-Public Use
  Company Number: US-ASTRAZENECA-2009UW04885

PATIENT
  Age: 29300 Day
  Sex: Female
  Weight: 77.1 kg

DRUGS (8)
  1. CRESTOR [Suspect]
     Route: 048
     Dates: start: 20090206
  2. JANUVIA [Concomitant]
     Indication: DIABETES MELLITUS
  3. CEREFOLIN [Concomitant]
     Indication: AMNESIA
  4. BENICAR HCT [Concomitant]
     Indication: HYPERTENSION
  5. BYSTOLIC [Concomitant]
  6. OMEPRAZOLE [Concomitant]
     Indication: DYSPEPSIA
  7. SKELAXIN [Concomitant]
     Indication: MUSCLE DISORDER
  8. BONIVA [Concomitant]
     Indication: OSTEOPOROSIS

REACTIONS (1)
  - DIARRHOEA [None]
